FAERS Safety Report 20335538 (Version 1)
Quarter: 2022Q1

REPORT INFORMATION
  Report Type: Report from Study
  Country: US (occurrence: US)
  Receive Date: 20220114
  Receipt Date: 20220114
  Transmission Date: 20220423
  Serious: Yes (Death, Other)
  Sender: FDA-Public Use
  Company Number: US-TAKEDA-2021TUS077841

PATIENT
  Age: 64 Year
  Sex: Female

DRUGS (1)
  1. PONATINIB [Suspect]
     Active Substance: PONATINIB
     Indication: Gallbladder cancer
     Dosage: 30 MILLIGRAM, QD
     Route: 048

REACTIONS (2)
  - Thrombosis [Fatal]
  - Off label use [Unknown]

NARRATIVE: CASE EVENT DATE: 20220110
